FAERS Safety Report 7150864-6 (Version None)
Quarter: 2010Q4

REPORT INFORMATION
  Report Type: 
  Country: None (occurrence: None)
  Receive Date: 20101124
  Receipt Date: 20101110
  Transmission Date: 20110411
  Serious: Yes (Hospitalization, Other)
  Sender: FDA-Public Use
  Company Number: ACO_20363_2010

PATIENT
  Age: 30 Year
  Sex: Female
  Weight: 100.5 kg

DRUGS (9)
  1. AMPYRA [Suspect]
     Indication: MULTIPLE SCLEROSIS
     Dosage: 10 MG, BID, ORAL
     Route: 048
     Dates: start: 20101027, end: 20101028
  2. BETASERON [Concomitant]
  3. BACLOFEN [Concomitant]
  4. SYNTHROID (LEBOTHYROXINE SODIUM) [Concomitant]
  5. KLONOPIN [Concomitant]
  6. EFFEXOR [Concomitant]
  7. PROZAC [Concomitant]
  8. AMBIEN [Concomitant]
  9. VICODIN [Concomitant]

REACTIONS (1)
  - GRAND MAL CONVULSION [None]
